FAERS Safety Report 19159256 (Version 1)
Quarter: 2021Q2

REPORT INFORMATION
  Report Type: Spontaneous
  Country: AU (occurrence: AU)
  Receive Date: 20210420
  Receipt Date: 20210420
  Transmission Date: 20210717
  Serious: Yes (Other)
  Sender: FDA-Public Use
  Company Number: AU-SA-2021SA119082

PATIENT
  Age: 68 Year
  Sex: Male

DRUGS (2)
  1. CLOPIDOGREL BISULFATE. [Suspect]
     Active Substance: CLOPIDOGREL BISULFATE
     Indication: MYOCARDIAL ISCHAEMIA
     Dosage: UNK
     Route: 065
  2. ACETYLSALICYLIC ACID [Suspect]
     Active Substance: ASPIRIN
     Indication: MYOCARDIAL ISCHAEMIA
     Dosage: UNK
     Route: 065

REACTIONS (10)
  - Metastatic malignant melanoma [Unknown]
  - Gastrointestinal melanoma [Unknown]
  - Melaena [Unknown]
  - Abdominal pain upper [Unknown]
  - Iron deficiency anaemia [Unknown]
  - Recurrent cancer [Unknown]
  - Necrotic lymphadenopathy [Unknown]
  - Gastric ulcer [Unknown]
  - Tumour ulceration [Unknown]
  - Weight decreased [Unknown]
